FAERS Safety Report 7071139-X (Version None)
Quarter: 2010Q4

REPORT INFORMATION
  Report Type: 
  Country: None (occurrence: None)
  Receive Date: 20101029
  Receipt Date: 20101022
  Transmission Date: 20110411
  Serious: Yes (Death)
  Sender: FDA-Public Use
  Company Number: US-JNJFOC-20100304430

PATIENT
  Sex: Female
  Weight: 72.58 kg

DRUGS (18)
  1. DURAGESIC-100 [Suspect]
     Indication: PAIN
     Route: 062
  2. AMITRIPTYLINE HYDROCHLORIDE [Concomitant]
     Route: 065
  3. SERTRALINE HYDROCHLORIDE [Concomitant]
     Route: 065
  4. NORTRIPTYLINE [Concomitant]
     Route: 065
  5. NICOTINE [Concomitant]
     Route: 065
  6. LORAZEPAM [Concomitant]
     Route: 065
  7. CITRACAL [Concomitant]
     Route: 065
  8. PERCOCET [Concomitant]
     Route: 065
  9. SOMATROPIN [Concomitant]
     Route: 065
  10. CLARITIN-D [Concomitant]
     Route: 065
  11. EFFEXOR [Concomitant]
     Route: 065
  12. PREDNISONE [Concomitant]
     Route: 065
  13. NEXIUM [Concomitant]
     Route: 065
  14. SYNTHROID [Concomitant]
     Route: 065
  15. NASONEX [Concomitant]
     Route: 065
  16. ERYTHROMYCIN ETHYLSUCCINATE [Concomitant]
     Route: 065
  17. ZOCOR [Concomitant]
     Route: 065
  18. CENTRUM SILVER [Concomitant]
     Route: 065

REACTIONS (3)
  - DRUG ADMINISTERED AT INAPPROPRIATE SITE [None]
  - DRUG INEFFECTIVE [None]
  - NARCOTIC INTOXICATION [None]
